FAERS Safety Report 12746599 (Version 1)
Quarter: 2016Q3

REPORT INFORMATION
  Report Type: Spontaneous
  Country: US (occurrence: US)
  Receive Date: 20160915
  Receipt Date: 20160915
  Transmission Date: 20161109
  Serious: Yes (Hospitalization)
  Sender: FDA-Public Use
  Company Number: None

PATIENT
  Age: 18 Year
  Sex: Male
  Weight: 65 kg

DRUGS (1)
  1. NIVOLUMAB [Suspect]
     Active Substance: NIVOLUMAB
     Indication: HODGKIN^S DISEASE
     Dosage: OTHER INTRAVENOUS BOLUS
     Route: 040
     Dates: start: 20160701, end: 20160901

REACTIONS (1)
  - Urinary retention [None]

NARRATIVE: CASE EVENT DATE: 20160909
